FAERS Safety Report 15801996 (Version 1)
Quarter: 2019Q1

REPORT INFORMATION
  Report Type: Spontaneous
  Country: US (occurrence: US)
  Receive Date: 20190109
  Receipt Date: 20190109
  Transmission Date: 20190417
  Serious: No
  Sender: FDA-Public Use
  Company Number: PHEH2019US000857

PATIENT
  Sex: Male

DRUGS (1)
  1. NEO AND POLY B SULFATES + HYDROCORTISONE [Suspect]
     Active Substance: BACITRACIN\NEOMYCIN\POLYMYXIN B
     Indication: CONJUNCTIVITIS
     Dosage: UNK, TID
     Route: 047

REACTIONS (4)
  - Vision blurred [Unknown]
  - Bronchitis [Unknown]
  - Wrong technique in product usage process [Unknown]
  - Sinusitis [Unknown]
